FAERS Safety Report 6982601-X (Version None)
Quarter: 2010Q3

REPORT INFORMATION
  Report Type: 
  Country: None (occurrence: None)
  Receive Date: 20100914
  Receipt Date: 20100211
  Transmission Date: 20110219
  Serious: No
  Sender: FDA-Public Use
  Company Number: US-PFIZER INC-2010021319

PATIENT
  Sex: Female

DRUGS (3)
  1. LYRICA [Suspect]
     Dosage: 600 MG, 1X/DAY
  2. CYMBALTA [Concomitant]
  3. LAMOTRIGINE [Concomitant]

REACTIONS (1)
  - DYSPHAGIA [None]
